FAERS Safety Report 8128855-8 (Version None)
Quarter: 2012Q1

REPORT INFORMATION
  Report Type: 
  Country: None (occurrence: None)
  Receive Date: 20120210
  Receipt Date: 20110405
  Transmission Date: 20120608
  Serious: No
  Sender: FDA-Public Use
  Company Number: US-BRISTOL-MYERS SQUIBB COMPANY-15654031

PATIENT
  Age: 10 Year
  Sex: Female
  Weight: 34 kg

DRUGS (3)
  1. ORENCIA [Suspect]
     Indication: JUVENILE ARTHRITIS
     Dosage: TOTAL:11 INFUSION
  2. METHOTREXATE [Concomitant]
  3. CELEBREX [Concomitant]

REACTIONS (1)
  - DYSAESTHESIA [None]
